FAERS Safety Report 7334448-2 (Version None)
Quarter: 2011Q1

REPORT INFORMATION
  Report Type: 
  Country: None (occurrence: None)
  Receive Date: 20110307
  Receipt Date: 20110222
  Transmission Date: 20110831
  Serious: Yes (Other)
  Sender: FDA-Public Use
  Company Number: DE-AMGEN-DEUSP2011010987

PATIENT
  Age: 50 Year
  Sex: Female

DRUGS (5)
  1. ENBREL [Suspect]
     Dosage: 25 MG, 2X/WEEK
  2. BEOFENAC [Suspect]
     Dosage: 25 MG, 2X/DAY
  3. ENBREL [Suspect]
     Dosage: 25 MG, 1-2 TIMES PER WEEK
  4. PREDNISOLONE [Concomitant]
     Dosage: 5 MG, 1X/DAY
  5. ENBREL [Suspect]
     Indication: PRODUCT USED FOR UNKNOWN INDICATION
     Dosage: 25 MG, UNK

REACTIONS (10)
  - PALPITATIONS [None]
  - LIVER DISORDER [None]
  - MUSCULAR WEAKNESS [None]
  - FATIGUE [None]
  - DIZZINESS [None]
  - EYE DISORDER [None]
  - INJECTION SITE PRURITUS [None]
  - BALANCE DISORDER [None]
  - FEELING ABNORMAL [None]
  - SWELLING [None]
